FAERS Safety Report 5117736-X (Version None)
Quarter: 2006Q3

REPORT INFORMATION
  Report Type: 
  Country: None (occurrence: None)
  Receive Date: 20060926
  Receipt Date: 20060906
  Transmission Date: 20061208
  Serious: Yes (Hospitalization)
  Sender: FDA-Public Use
  Company Number: MY200607003681

PATIENT
  Age: 38 Year
  Sex: Female

DRUGS (2)
  1. CYMBALTA [Suspect]
     Indication: PANIC DISORDER
     Dosage: 60 MG, DAILY (1/D), ORAL
     Route: 048
     Dates: start: 20060601, end: 20060630
  2. PROPRANOLOL (PROPANOLOL) [Concomitant]

REACTIONS (2)
  - BREAST DISCHARGE [None]
  - MENSTRUATION IRREGULAR [None]
